FAERS Safety Report 7603930-2 (Version None)
Quarter: 2011Q3

REPORT INFORMATION
  Report Type: 
  Country: None (occurrence: None)
  Receive Date: 20110712
  Receipt Date: 20110705
  Transmission Date: 20111222
  Serious: Yes (Other)
  Sender: FDA-Public Use
  Company Number: US-ROCHE-777970

PATIENT
  Sex: Male

DRUGS (4)
  1. RIBAVIRIN [Suspect]
     Indication: HEPATITIS C
     Dosage: FREQUENCY:DAILY
     Route: 065
     Dates: start: 20110506
  2. PEGASYS [Suspect]
     Indication: HEPATITIS C
     Route: 065
     Dates: start: 20110506
  3. KLONOPIN [Concomitant]
  4. CELEXA [Concomitant]

REACTIONS (4)
  - DYSPNOEA [None]
  - WHITE BLOOD CELL COUNT DECREASED [None]
  - SPUTUM DISCOLOURED [None]
  - NEPHROLITHIASIS [None]
